FAERS Safety Report 23955723 (Version 1)
Quarter: 2024Q2

REPORT INFORMATION
  Report Type: Spontaneous
  Country: US (occurrence: US)
  Receive Date: 20240610
  Receipt Date: 20240610
  Transmission Date: 20240715
  Serious: Yes (Other)
  Sender: FDA-Public Use
  Company Number: US-MLMSERVICE-20240522-PI072961-00329-1

PATIENT
  Age: 44 Year
  Sex: Female

DRUGS (4)
  1. VANCOMYCIN [Suspect]
     Active Substance: VANCOMYCIN
     Indication: Staphylococcal infection
     Dosage: 1.5 GRAM (VANCOMYCIN 1.5 G INFUSION/150 MINUTES IN 500 ML OF NORMAL SALINE EVERY 12 HOURS)
     Route: 065
  2. TRIAMCINOLONE ACETONIDE [Concomitant]
     Active Substance: TRIAMCINOLONE ACETONIDE
     Indication: Staphylococcal infection
     Dosage: UNK
     Route: 065
  3. SODIUM CHLORIDE [Concomitant]
     Active Substance: SODIUM CHLORIDE
     Indication: Staphylococcal infection
     Dosage: 500 MILLILITER (VANCOMYCIN 1.5 G INFUSION/150 MINUTES IN 500 ML OF NORMAL SALINE EVERY 12 HOURS)
     Route: 065
  4. HYDROMORPHONE [Concomitant]
     Active Substance: HYDROMORPHONE
     Indication: Staphylococcal infection
     Dosage: UNK
     Route: 065

REACTIONS (1)
  - Vancomycin infusion reaction [Recovered/Resolved]
